FAERS Safety Report 10018213 (Version 1)
Quarter: 2014Q1

REPORT INFORMATION
  Report Type: Spontaneous
  Country: US (occurrence: US)
  Receive Date: 20140318
  Receipt Date: 20140318
  Transmission Date: 20141002
  Serious: No
  Sender: FDA-Public Use
  Company Number: US-BRISTOL-MYERS SQUIBB COMPANY-19341346

PATIENT
  Age: 61 Year
  Sex: Female

DRUGS (2)
  1. ERBITUX [Suspect]
     Indication: COLON CANCER STAGE III
  2. ALEVE [Concomitant]

REACTIONS (7)
  - Acne [Unknown]
  - Rash [Unknown]
  - Alopecia [Unknown]
  - Skin disorder [Unknown]
  - Pruritus generalised [Unknown]
  - Dysphonia [Unknown]
  - Onychalgia [Unknown]
